FAERS Safety Report 7993441-7 (Version None)
Quarter: 2011Q4

REPORT INFORMATION
  Report Type: 
  Country: None (occurrence: None)
  Receive Date: 20111219
  Receipt Date: 20110621
  Transmission Date: 20120403
  Serious: No
  Sender: FDA-Public Use
  Company Number: US-ASTRAZENECA-2011SE16479

PATIENT
  Age: 47 Year
  Sex: Female
  Weight: 107 kg

DRUGS (16)
  1. VERAMYST [Concomitant]
     Indication: RHINITIS ALLERGIC
  2. LISINOPRIL AND HYDROCHLOROTHIAZIDE [Suspect]
     Indication: BLOOD PRESSURE
     Dosage: 20-25 MG I TABLET DAILY
     Route: 048
  3. METFORMIN HCL [Concomitant]
  4. VENTOLIN HFA [Concomitant]
     Indication: COUGH
  5. GLIMEPIRIDE [Concomitant]
  6. OMEPRAZOLE [Suspect]
     Dosage: ON EMPTY STOMACH
     Route: 048
  7. VENTOLIN HFA [Concomitant]
     Indication: WHEEZING
  8. LORATADINE [Concomitant]
  9. CRESTOR [Suspect]
     Route: 048
  10. AMLODIPINE [Concomitant]
     Indication: BLOOD PRESSURE
  11. SINGULAIR [Concomitant]
  12. NAPROSYN [Concomitant]
  13. VENTOLIN HFA [Concomitant]
     Indication: DYSPNOEA
  14. LEVOTHYROXINE SODIUM [Concomitant]
     Indication: THYROID DISORDER
  15. LIPITOR [Concomitant]
  16. ADVAIR HFA [Concomitant]

REACTIONS (5)
  - LABORATORY TEST ABNORMAL [None]
  - BLOOD GLUCOSE INCREASED [None]
  - RHINITIS ALLERGIC [None]
  - HYPERCHOLESTEROLAEMIA [None]
  - GLYCOSYLATED HAEMOGLOBIN INCREASED [None]
